FAERS Safety Report 7690997-9 (Version None)
Quarter: 2011Q3

REPORT INFORMATION
  Report Type: 
  Country: None (occurrence: None)
  Receive Date: 20110818
  Receipt Date: 20110812
  Transmission Date: 20111222
  Serious: Yes (Other)
  Sender: FDA-Public Use
  Company Number: SE-AMGEN-SWESP2011033053

PATIENT
  Age: 63 Year
  Sex: Female
  Weight: 50 kg

DRUGS (10)
  1. CARBAMAZEPINE [Suspect]
     Dosage: UNK UNK, QD
  2. ZOPIKLON [Concomitant]
     Dosage: UNK UNK, QD
  3. KALCIPOS-D [Concomitant]
     Dosage: UNK UNK, QD
  4. SIMVASTATIN [Suspect]
     Dosage: UNK UNK, QD
  5. ANAFRANIL [Suspect]
     Dosage: UNK UNK, QD
  6. PROPAVAN [Concomitant]
     Dosage: UNK UNK, QD
  7. CLONAZEPAM [Suspect]
     Dosage: UNK UNK, QD
  8. ATENOLOL [Concomitant]
     Dosage: UNK UNK, QD
  9. ASPIRIN [Concomitant]
     Dosage: UNK UNK, QD
  10. PROLIA [Suspect]
     Indication: OSTEOPOROSIS
     Dosage: 60 MG, UNK
     Route: 058
     Dates: start: 20110616, end: 20110629

REACTIONS (2)
  - SWELLING FACE [None]
  - URTICARIA [None]
